FAERS Safety Report 8520619-6 (Version None)
Quarter: 2012Q3

REPORT INFORMATION
  Report Type: 
  Country: None (occurrence: None)
  Receive Date: 20120713
  Receipt Date: 20120713
  Transmission Date: 20120928
  Serious: Yes (Life-Threatening, Other)
  Sender: FDA-Public Use
  Company Number: None

PATIENT
  Sex: Female
  Weight: 77.1115 kg

DRUGS (4)
  1. CYMBALTA [Suspect]
     Indication: SOCIAL PHOBIA
     Dosage: 180 MG DAILY PILLS
     Dates: start: 20080101, end: 20120101
  2. CYMBALTA [Suspect]
     Indication: POST-TRAUMATIC STRESS DISORDER
     Dosage: 180 MG DAILY PILLS
     Dates: start: 20080101, end: 20120101
  3. CYMBALTA [Suspect]
     Indication: ANXIETY
     Dosage: 180 MG DAILY PILLS
     Dates: start: 20080101, end: 20120101
  4. CYMBALTA [Suspect]
     Indication: DEPRESSION
     Dosage: 180 MG DAILY PILLS
     Dates: start: 20080101, end: 20120101

REACTIONS (6)
  - POST-TRAUMATIC STRESS DISORDER [None]
  - CONDITION AGGRAVATED [None]
  - SOCIAL PHOBIA [None]
  - SUICIDAL BEHAVIOUR [None]
  - DEPRESSION [None]
  - ANXIETY [None]
